FAERS Safety Report 5235086-8 (Version None)
Quarter: 2007Q2

REPORT INFORMATION
  Report Type: 
  Country: None (occurrence: None)
  Receive Date: 20070207
  Receipt Date: 20070124
  Transmission Date: 20071010
  Serious: Yes (Death, Hospitalization)
  Sender: FDA-Public Use
  Company Number: 02100-JPN-07-0058

PATIENT
  Age: 53 Year
  Sex: Male

DRUGS (7)
  1. CILOSTAZOL [Suspect]
     Indication: CEREBRAL INFARCTION
     Dosage: ONE OF 200MG OR 75 MG
     Route: 048
     Dates: start: 20070118, end: 20070120
  2. ATORVASTATIN CALCIUM [Suspect]
  3. SODIUM CHLORIDE [Concomitant]
  4. CITICOLINE [Concomitant]
  5. REBAMIPIDE [Concomitant]
  6. CLOPIDOGREL [Suspect]
  7. ASPIRIN [Concomitant]

REACTIONS (4)
  - BRAIN OEDEMA [None]
  - CEREBRAL HAEMORRHAGE [None]
  - CONVULSION [None]
  - INTRAVENTRICULAR HAEMORRHAGE [None]
